FAERS Safety Report 16154526 (Version 1)
Quarter: 2019Q2

REPORT INFORMATION
  Report Type: Spontaneous
  Country: US (occurrence: US)
  Receive Date: 20190403
  Receipt Date: 20190403
  Transmission Date: 20190711
  Serious: No
  Sender: FDA-Public Use
  Company Number: US-TEVA-2019-US-1028878

PATIENT
  Sex: Male

DRUGS (1)
  1. ENOXAPARIN SODIUM INJECTION [Suspect]
     Active Substance: ENOXAPARIN SODIUM
     Indication: PULMONARY EMBOLISM
     Dosage: DOSE STRENGTH: ENOXAPARIN 150 MG/SODIUM  1 ML
     Dates: start: 20190124

REACTIONS (2)
  - Injection site bruising [Recovering/Resolving]
  - Injection site swelling [Unknown]
